FAERS Safety Report 25481992 (Version 1)
Quarter: 2025Q2

REPORT INFORMATION
  Report Type: Report from Study
  Country: US (occurrence: US)
  Receive Date: 20250626
  Receipt Date: 20250626
  Transmission Date: 20250717
  Serious: Yes (Other)
  Sender: NOVARTIS
  Company Number: US-002147023-NVSC2025US091294

PATIENT
  Sex: Female

DRUGS (2)
  1. MAYZENT [Suspect]
     Active Substance: SIPONIMOD
     Indication: Product used for unknown indication
     Route: 065
  2. MAYZENT [Suspect]
     Active Substance: SIPONIMOD
     Route: 065

REACTIONS (11)
  - Diverticulitis [Unknown]
  - Lymphocyte count decreased [Recovering/Resolving]
  - Urinary tract infection [Unknown]
  - Blood urine present [Unknown]
  - Decreased immune responsiveness [Unknown]
  - Memory impairment [Unknown]
  - Abdominal pain [Unknown]
  - Nausea [Not Recovered/Not Resolved]
  - Vomiting [Unknown]
  - Drug ineffective [Unknown]
  - Off label use [Unknown]
